FAERS Safety Report 25087104 (Version 1)
Quarter: 2025Q1

REPORT INFORMATION
  Report Type: Spontaneous
  Country: TR (occurrence: TR)
  Receive Date: 20250318
  Receipt Date: 20250318
  Transmission Date: 20250408
  Serious: Yes (Other)
  Sender: CHEPLAPHARM
  Company Number: None

PATIENT
  Age: 16 Year
  Sex: Male

DRUGS (7)
  1. OLANZAPINE [Suspect]
     Active Substance: OLANZAPINE
     Dosage: DAILY DOSE: 2.5 MILLIGRAM
  2. PROPRANOLOL [Suspect]
     Active Substance: PROPRANOLOL HYDROCHLORIDE
  3. CLOMIPRAMINE [Suspect]
     Active Substance: CLOMIPRAMINE
     Dosage: 25?50 MG/DAY (UP TO 100 MG DAILY)
  4. ALPRAZOLAM [Suspect]
     Active Substance: ALPRAZOLAM
  5. BUTYLSCOPOLAMINE BROMIDE\MEDAZEPAM [Suspect]
     Active Substance: BUTYLSCOPOLAMINE BROMIDE\MEDAZEPAM
  6. RISPERIDONE [Concomitant]
     Active Substance: RISPERIDONE
     Indication: Palpitations
     Dosage: DAILY DOSE: 2 MILLIGRAM
  7. HALOPERIDOL [Concomitant]
     Active Substance: HALOPERIDOL
     Indication: Extrapyramidal disorder
     Dosage: 2.5-5MG/DAY

REACTIONS (2)
  - Psychotic symptom [Recovered/Resolved]
  - Weight increased [Not Recovered/Not Resolved]
